FAERS Safety Report 16564184 (Version 1)
Quarter: 2019Q3

REPORT INFORMATION
  Report Type: Spontaneous
  Country: CA (occurrence: CA)
  Receive Date: 20190712
  Receipt Date: 20190712
  Transmission Date: 20191004
  Serious: Yes (Death)
  Sender: FDA-Public Use
  Company Number: CA-TEVA-2019-CA-1074615

PATIENT
  Age: 79 Year
  Sex: Female
  Weight: 43 kg

DRUGS (15)
  1. METOPROLOL. [Suspect]
     Active Substance: METOPROLOL
     Indication: MYOCARDIAL INFARCTION
     Route: 065
  2. ALENDRONATE [Suspect]
     Active Substance: ALENDRONATE SODIUM
     Indication: OSTEOPOROSIS
     Route: 065
  3. ACETAMINOPHEN. [Concomitant]
     Active Substance: ACETAMINOPHEN
  4. FERROUS GLUCONATE [Concomitant]
     Active Substance: FERROUS GLUCONATE
  5. LEFLUNOMIDE. [Suspect]
     Active Substance: LEFLUNOMIDE
     Indication: PRODUCT USED FOR UNKNOWN INDICATION
     Route: 065
  6. POTASSIUM (NOS) [Suspect]
     Active Substance: POTASSIUM
     Indication: PRODUCT USED FOR UNKNOWN INDICATION
     Route: 065
  7. TRACLEER [Suspect]
     Active Substance: BOSENTAN
     Indication: PULMONARY ARTERIAL HYPERTENSION
     Dosage: 250 MILLIGRAM DAILY;
     Route: 048
  8. ASA [Concomitant]
     Active Substance: ASPIRIN
  9. FUROSEMIDE. [Concomitant]
     Active Substance: FUROSEMIDE
  10. SYNTHROID [Concomitant]
     Active Substance: LEVOTHYROXINE SODIUM
  11. TEMAZEPAM. [Concomitant]
     Active Substance: TEMAZEPAM
  12. RANITIDINE. [Suspect]
     Active Substance: RANITIDINE
     Indication: PRODUCT USED FOR UNKNOWN INDICATION
     Dosage: 300 MILLIGRAM DAILY;
     Route: 065
  13. TOPIRAMATE. [Concomitant]
     Active Substance: TOPIRAMATE
  14. ATORVASTATIN [Concomitant]
     Active Substance: ATORVASTATIN
  15. ERGOCALCIFEROL. [Concomitant]
     Active Substance: ERGOCALCIFEROL

REACTIONS (1)
  - Pleural effusion [Fatal]
